FAERS Safety Report 6152382-0 (Version None)
Quarter: 2009Q2

REPORT INFORMATION
  Report Type: 
  Country: None (occurrence: None)
  Receive Date: 20090413
  Receipt Date: 20090402
  Transmission Date: 20091009
  Serious: Yes (Congenital Anomaly, Other)
  Sender: FDA-Public Use
  Company Number: ES-JNJFOC-20090400862

PATIENT
  Sex: Male

DRUGS (3)
  1. REMICADE [Suspect]
     Dosage: 3 DOSES
     Route: 015
  2. REMICADE [Suspect]
     Route: 015
  3. REMICADE [Suspect]
     Indication: DRUG EXPOSURE DURING PREGNANCY
     Dosage: 3 DOSES ADMINISTERED IN THIS TIMEFRAME
     Route: 015

REACTIONS (1)
  - ADRENOGENITAL SYNDROME [None]
